FAERS Safety Report 9845519 (Version 1)
Quarter: 2014Q1

REPORT INFORMATION
  Report Type: Spontaneous
  Country: US (occurrence: None)
  Receive Date: 20140123
  Receipt Date: 20140123
  Transmission Date: 20141002
  Serious: Yes (Other)
  Sender: FDA-Public Use
  Company Number: None

PATIENT
  Age: 79 Year
  Sex: Female
  Weight: 54.43 kg

DRUGS (1)
  1. LORAZEPAM [Suspect]
     Indication: INSOMNIA
     Dosage: 1 MG  1 AT BEDTIME  MOUTH
     Route: 048
     Dates: start: 20130801, end: 20140117

REACTIONS (6)
  - Coma [None]
  - Hypertension [None]
  - Nausea [None]
  - Vomiting [None]
  - Decreased appetite [None]
  - Fatigue [None]
